FAERS Safety Report 5749621-4 (Version None)
Quarter: 2008Q2

REPORT INFORMATION
  Report Type: 
  Country: None (occurrence: None)
  Receive Date: 20080522
  Receipt Date: 20080522
  Transmission Date: 20081010
  Serious: Yes (Other)
  Sender: FDA-Public Use
  Company Number: None

PATIENT
  Age: 13 Year
  Sex: Female
  Weight: 52.1637 kg

DRUGS (2)
  1. SINGULAIR [Suspect]
     Indication: ASTHMA
     Dosage: 5MG ONCE DAILY
     Dates: start: 20060901, end: 20070901
  2. SINGULAIR [Suspect]
     Indication: ASTHMA
     Dosage: 10MG ONCE DAILY
     Dates: start: 20070901, end: 20080508

REACTIONS (4)
  - ANXIETY [None]
  - DEPRESSION [None]
  - MOOD ALTERED [None]
  - SUICIDAL IDEATION [None]
